FAERS Safety Report 8454274-0 (Version None)
Quarter: 2012Q2

REPORT INFORMATION
  Report Type: 
  Country: None (occurrence: None)
  Receive Date: 20120620
  Receipt Date: 20120618
  Transmission Date: 20120825
  Serious: Yes (Other)
  Sender: FDA-Public Use
  Company Number: DE-AMGEN-DEUSP2012037542

PATIENT
  Age: 70 Year
  Sex: Male

DRUGS (3)
  1. BONVIVA                            /01304701/ [Concomitant]
     Route: 042
  2. PROLIA [Suspect]
     Indication: PRODUCT USED FOR UNKNOWN INDICATION
     Dosage: 60 MG, UNK
  3. PROLIA [Suspect]

REACTIONS (2)
  - OSTEONECROSIS OF JAW [None]
  - SURGERY [None]
